FAERS Safety Report 17222092 (Version 1)
Quarter: 2019Q4

REPORT INFORMATION
  Report Type: Spontaneous
  Country: US (occurrence: US)
  Receive Date: 20191209
  Receipt Date: 20191209
  Transmission Date: 20200122
  Serious: Yes (Hospitalization)
  Sender: FDA-Public Use
  Company Number: None

PATIENT
  Age: 35 Year
  Sex: Female

DRUGS (5)
  1. SYNTHROID TAB50CG [Concomitant]
     Dates: start: 20191206
  2. ZOFRAN TAB 8MG [Concomitant]
     Dates: start: 20191206
  3. ZOLOFT TAB25MF [Concomitant]
     Dates: start: 20191206
  4. NASACORT ALR SPR55MCG/AC [Concomitant]
     Dates: start: 20191206
  5. AFINITOR [Suspect]
     Active Substance: EVEROLIMUS
     Indication: CARCINOID TUMOUR
     Route: 048
     Dates: start: 20190607

REACTIONS (2)
  - Stomatitis [None]
  - Pneumonia [None]
